FAERS Safety Report 26171395 (Version 1)
Quarter: 2025Q4

REPORT INFORMATION
  Report Type: Spontaneous
  Country: US (occurrence: US)
  Receive Date: 20251217
  Receipt Date: 20251217
  Transmission Date: 20260117
  Serious: No
  Sender: LENZ Therapeutics
  Company Number: US-LENZ THERAPEUTICS, INC.-2025LTS000087

PATIENT
  Sex: Female

DRUGS (1)
  1. VIZZ [Suspect]
     Active Substance: ACECLIDINE HYDROCHLORIDE
     Indication: Presbyopia
     Dosage: 0.4 MILLILITER, QD
     Route: 047

REACTIONS (3)
  - Instillation site irritation [Unknown]
  - Visual impairment [Unknown]
  - Ocular hyperaemia [Unknown]
